FAERS Safety Report 10911247 (Version 2)
Quarter: 2015Q2

REPORT INFORMATION
  Report Type: Report from Study
  Country: JP (occurrence: JP)
  Receive Date: 20150312
  Receipt Date: 20150608
  Transmission Date: 20150821
  Serious: Yes (Other)
  Sender: FDA-Public Use
  Company Number: JP-MYLANLABS-2015M1007860

PATIENT

DRUGS (4)
  1. PARAPLATIN [Suspect]
     Active Substance: CARBOPLATIN
     Indication: PINEAL PARENCHYMAL NEOPLASM MALIGNANT
     Dosage: 110 MG/M2 DAY 1; 6 CYCLES
     Route: 065
  2. NIMUSTINE [Suspect]
     Active Substance: NIMUSTINE
     Indication: PINEAL PARENCHYMAL NEOPLASM MALIGNANT
     Dosage: 60 MG/M2 DAY 1; 6 CYCLES
     Route: 065
  3. VINCRISTINE [Suspect]
     Active Substance: VINCRISTINE
     Indication: PINEAL PARENCHYMAL NEOPLASM MALIGNANT
     Dosage: 0.6 MG/M2 DAY 1, 8, AND 15; 6 CYCLES
     Route: 065
  4. INTERFERON BETA NOS [Suspect]
     Active Substance: INTERFERON BETA
     Indication: PINEAL PARENCHYMAL NEOPLASM MALIGNANT
     Dosage: 3 X 10E6 IU DAY 1, 8, AND 15; 6 CYCLES
     Route: 065

REACTIONS (3)
  - Growth hormone deficiency [Unknown]
  - Cerebral disorder [Unknown]
  - Cognitive disorder [Unknown]
